FAERS Safety Report 7586278-4 (Version None)
Quarter: 2011Q3

REPORT INFORMATION
  Report Type: 
  Country: None (occurrence: None)
  Receive Date: 20110701
  Receipt Date: 20110609
  Transmission Date: 20111222
  Serious: Yes (Other)
  Sender: FDA-Public Use
  Company Number: US-BAYER-2011-041788

PATIENT
  Age: 57 Year
  Sex: Female

DRUGS (1)
  1. ANGELIQ [Suspect]
     Dosage: UNK
     Dates: start: 20070101

REACTIONS (7)
  - TUNNEL VISION [None]
  - ASTHENIA [None]
  - FATIGUE [None]
  - PARAESTHESIA [None]
  - HOT FLUSH [None]
  - NIGHT SWEATS [None]
  - PAIN [None]
